FAERS Safety Report 20439808 (Version 3)
Quarter: 2022Q2

REPORT INFORMATION
  Report Type: Report from Study
  Country: FR (occurrence: FR)
  Receive Date: 20220207
  Receipt Date: 20220404
  Transmission Date: 20220720
  Serious: Yes (Other)
  Sender: FDA-Public Use
  Company Number: FR-GILEAD-2022-0568427

PATIENT
  Sex: Female
  Weight: 59 kg

DRUGS (4)
  1. SACITUZUMAB GOVITECAN [Suspect]
     Active Substance: SACITUZUMAB GOVITECAN
     Indication: Triple negative breast cancer
     Dosage: 9.3 MG/KG, QD, CYCLE 1, DAYS 1 AND 8
     Route: 042
     Dates: start: 20211126, end: 20211202
  2. SACITUZUMAB GOVITECAN [Suspect]
     Active Substance: SACITUZUMAB GOVITECAN
     Dosage: 7.5 MG/KG, QD, CYCLE 2, DAYS 1 AND 8
     Route: 042
     Dates: start: 20211223, end: 20211230
  3. SACITUZUMAB GOVITECAN [Suspect]
     Active Substance: SACITUZUMAB GOVITECAN
     Dosage: 7.5 MG/KG, QD, CYCLE 3, DAYS 1 AND 8
     Route: 042
     Dates: start: 20220120, end: 20220127
  4. SACITUZUMAB GOVITECAN [Suspect]
     Active Substance: SACITUZUMAB GOVITECAN
     Dosage: 375 MG/KG, QD,C4D1 AND C4D8
     Route: 042
     Dates: start: 20220210, end: 20220217

REACTIONS (4)
  - Asthenia [Recovered/Resolved]
  - Cytopenia [Recovered/Resolved]
  - Vomiting [Recovered/Resolved]
  - Off label use [Unknown]

NARRATIVE: CASE EVENT DATE: 20211202
